FAERS Safety Report 7369869-5 (Version None)
Quarter: 2011Q1

REPORT INFORMATION
  Report Type: 
  Country: None (occurrence: None)
  Receive Date: 20110323
  Receipt Date: 20110322
  Transmission Date: 20110831
  Serious: Yes (Other)
  Sender: FDA-Public Use
  Company Number: US-CEPHALON-2010005851

PATIENT
  Age: 74 Year
  Sex: Male

DRUGS (8)
  1. MODAFINIL [Suspect]
     Indication: DEPRESSION
     Route: 048
  2. LITHIUM [Concomitant]
  3. MODAFINIL [Suspect]
     Route: 048
  4. VENLAFAXINE [Concomitant]
  5. QUETIAPINE [Concomitant]
  6. LAMOTRIGINE [Concomitant]
  7. MODAFINIL [Suspect]
     Route: 048
  8. MODAFINIL [Suspect]
     Route: 048

REACTIONS (5)
  - DYSKINESIA [None]
  - URINARY RETENTION [None]
  - MENTAL STATUS CHANGES [None]
  - CONSTIPATION [None]
  - DRUG TOLERANCE [None]
